FAERS Safety Report 16107652 (Version 6)
Quarter: 2022Q1

REPORT INFORMATION
  Report Type: Spontaneous
  Country: RO (occurrence: RO)
  Receive Date: 20190322
  Receipt Date: 20220325
  Transmission Date: 20220423
  Serious: Yes (Hospitalization, Other)
  Sender: FDA-Public Use
  Company Number: RO-SUN PHARMACEUTICAL INDUSTRIES LTD-2019RR-200993

PATIENT
  Age: 7 Day
  Sex: Female

DRUGS (17)
  1. CONTROLOC [Suspect]
     Active Substance: PANTOPRAZOLE SODIUM
     Dosage: UNK
     Route: 065
  2. DIFLUCAN [Suspect]
     Active Substance: FLUCONAZOLE
     Dosage: UNK
  3. MEROPENEM [Suspect]
     Active Substance: MEROPENEM
     Dosage: UNK
  4. PIPERACILLIN SODIUM\TAZOBACTAM SODIUM [Suspect]
     Active Substance: PIPERACILLIN SODIUM\TAZOBACTAM SODIUM
     Dosage: UNK
  5. VANCOMYCIN HYDROCHLORIDE [Suspect]
     Active Substance: VANCOMYCIN HYDROCHLORIDE
     Dosage: UNK
  6. AMIODARONE HYDROCHLORIDE [Suspect]
     Active Substance: AMIODARONE HYDROCHLORIDE
     Dosage: UNK
  7. DIETARY SUPPLEMENT\PROBIOTICS [Suspect]
     Active Substance: DIETARY SUPPLEMENT\PROBIOTICS
     Dosage: UNK
  8. SPIRONOLACTONE [Suspect]
     Active Substance: SPIRONOLACTONE
     Dosage: UNK
  9. METRONIDAZOLE [Suspect]
     Active Substance: METRONIDAZOLE
     Dosage: UNK
  10. HUMAGLOBIN [Suspect]
     Active Substance: HUMAN IMMUNOGLOBULIN G
     Dosage: UNK
  11. CILASTATIN SODIUM\IMIPENEM [Suspect]
     Active Substance: CILASTATIN SODIUM\IMIPENEM
     Dosage: UNK
  12. DEXAMETHASONE [Suspect]
     Active Substance: DEXAMETHASONE
     Dosage: UNK
  13. COLISTIN [Suspect]
     Active Substance: COLISTIN
     Dosage: UNK
  14. TARGOCID [Suspect]
     Active Substance: TEICOPLANIN
     Dosage: UNK
  15. MOTILIUM [Suspect]
     Active Substance: DOMPERIDONE
     Dosage: UNK
  16. FUROSEMIDE [Suspect]
     Active Substance: FUROSEMIDE
     Dosage: UNK
  17. PYRIDOXINE HYDROCHLORIDE\SODIUM ASPARTATE [Suspect]
     Active Substance: PYRIDOXINE HYDROCHLORIDE\SODIUM ASPARTATE
     Dosage: UNK

REACTIONS (1)
  - Generalised tonic-clonic seizure [Recovered/Resolved]
